FAERS Safety Report 5701355-8 (Version None)
Quarter: 2008Q2

REPORT INFORMATION
  Report Type: 
  Country: None (occurrence: None)
  Receive Date: 20080408
  Receipt Date: 20080325
  Transmission Date: 20081010
  Serious: Yes (Hospitalization)
  Sender: FDA-Public Use
  Company Number: 2008BI002878

PATIENT
  Age: 72 Year
  Sex: Female
  Weight: 74.8435 kg

DRUGS (7)
  1. AVONEX [Suspect]
     Indication: MULTIPLE SCLEROSIS
     Dosage: 30 UG;QW;IM
     Route: 030
     Dates: start: 20041216
  2. LEXAPRO [Concomitant]
  3. NORVASC [Concomitant]
  4. MICRO-K [Concomitant]
  5. METOPROLOL TARTRATE [Concomitant]
  6. ASPIRIN [Concomitant]
  7. CALTRATE 600 [Concomitant]

REACTIONS (14)
  - ARTHRALGIA [None]
  - ASTHENIA [None]
  - BONE PAIN [None]
  - CONFUSIONAL STATE [None]
  - DEMENTIA [None]
  - FALL [None]
  - HERPES ZOSTER [None]
  - HYPERTENSION [None]
  - MULTIPLE SCLEROSIS [None]
  - NEURALGIA [None]
  - OBESITY [None]
  - RENAL IMPAIRMENT [None]
  - STREPTOCOCCAL INFECTION [None]
  - URINARY TRACT INFECTION [None]
